FAERS Safety Report 24356427 (Version 1)
Quarter: 2024Q3

REPORT INFORMATION
  Report Type: Spontaneous
  Country: US (occurrence: US)
  Receive Date: 20240924
  Receipt Date: 20240924
  Transmission Date: 20241017
  Serious: Yes (Life-Threatening, Hospitalization, Other)
  Sender: HIKMA
  Company Number: US-HIKMA PHARMACEUTICALS-US-H14001-24-08620

PATIENT
  Sex: Male
  Weight: 85.5 kg

DRUGS (8)
  1. CYCLOPHOSPHAMIDE [Suspect]
     Active Substance: CYCLOPHOSPHAMIDE
     Indication: Acute lymphocytic leukaemia
     Dosage: 3840 MILLIGRAM
     Route: 065
     Dates: start: 20240725, end: 20240728
  2. CYTARABINE [Suspect]
     Active Substance: CYTARABINE
     Indication: Acute lymphocytic leukaemia
     Dosage: 100 MILLIGRAM
     Route: 037
     Dates: start: 20240801, end: 20240801
  3. DEXAMETHASONE [Suspect]
     Active Substance: DEXAMETHASONE
     Indication: Acute lymphocytic leukaemia
     Dosage: 320 MILLIGRAM
     Route: 065
     Dates: start: 20240725, end: 20240807
  4. DOXORUBICIN [Suspect]
     Active Substance: DOXORUBICIN
     Indication: Acute lymphocytic leukaemia
     Dosage: 97 MILLIGRAM
     Route: 065
     Dates: start: 20240728, end: 20240728
  5. METHOTREXATE [Suspect]
     Active Substance: METHOTREXATE
     Indication: Acute lymphocytic leukaemia
     Dosage: 12 MILLIGRAM
     Route: 037
     Dates: start: 20240726, end: 20240726
  6. RITUXIMAB [Suspect]
     Active Substance: RITUXIMAB
     Indication: Acute lymphocytic leukaemia
     Dosage: 1400 MILLIGRAM
     Route: 065
     Dates: start: 20240726, end: 20240802
  7. VINCRISTINE SULFATE [Suspect]
     Active Substance: VINCRISTINE SULFATE
     Indication: Acute lymphocytic leukaemia
     Dosage: 4 MILLIGRAM
     Route: 065
     Dates: start: 20240725, end: 20240801
  8. MESNA [Concomitant]
     Active Substance: MESNA
     Indication: Product used for unknown indication
     Dosage: 3480 MILLIGRAM
     Route: 065
     Dates: start: 20240725, end: 20240728

REACTIONS (17)
  - Alanine aminotransferase increased [Recovering/Resolving]
  - Aspartate aminotransferase increased [Recovering/Resolving]
  - Abdominal pain [Recovering/Resolving]
  - Febrile neutropenia [Recovering/Resolving]
  - Fungaemia [Recovering/Resolving]
  - Enteritis infectious [Recovering/Resolving]
  - Sepsis [Recovering/Resolving]
  - Blood bilirubin increased [Recovering/Resolving]
  - Flank pain [Unknown]
  - Systemic candida [Unknown]
  - Lethargy [Unknown]
  - Somnolence [Unknown]
  - Jaundice [Unknown]
  - Lymphocyte count decreased [Recovering/Resolving]
  - Anaemia [Recovering/Resolving]
  - Neutrophil count decreased [Recovering/Resolving]
  - Platelet count decreased [Recovering/Resolving]

NARRATIVE: CASE EVENT DATE: 20240808
